FAERS Safety Report 10649168 (Version 3)
Quarter: 2015Q1

REPORT INFORMATION
  Report Type: Spontaneous
  Country: BR (occurrence: BR)
  Receive Date: 20141212
  Receipt Date: 20150126
  Transmission Date: 20150720
  Serious: Yes (Hospitalization)
  Sender: FDA-Public Use
  Company Number: 2014SP003816

PATIENT
  Age: 7 Year
  Sex: Male
  Weight: 37 kg

DRUGS (10)
  1. TEGRETOL [Concomitant]
     Active Substance: CARBAMAZEPINE
     Dates: start: 2007
  2. OMNARIS [Suspect]
     Active Substance: CICLESONIDE
     Indication: RHINITIS
     Route: 045
     Dates: start: 20141118
  3. AMINOPHYLLINE [Concomitant]
     Active Substance: AMINOPHYLLINE
     Dates: start: 2012
  4. RITMONORM [Concomitant]
     Active Substance: PROPAFENONE HYDROCHLORIDE
     Dates: start: 2013
  5. OMNARIS [Suspect]
     Active Substance: CICLESONIDE
     Indication: CONSTIPATION
     Route: 045
     Dates: start: 20141118
  6. RISPERIDONE. [Concomitant]
     Active Substance: RISPERIDONE
     Dates: start: 2010
  7. OMNARIS [Suspect]
     Active Substance: CICLESONIDE
     Indication: PRURITUS
     Route: 045
     Dates: start: 20141118
  8. MONTELUKAST [Concomitant]
     Active Substance: MONTELUKAST SODIUM
     Dates: start: 2011
  9. LORATADINE. [Concomitant]
     Active Substance: LORATADINE
     Dates: start: 2011
  10. HISTAMIN /00043702/ [Concomitant]
     Dates: start: 2011

REACTIONS (8)
  - Chest pain [Recovered/Resolved]
  - Ear haemorrhage [Recovered/Resolved]
  - Hypoxia [Recovered/Resolved]
  - Epistaxis [Recovered/Resolved]
  - Fatigue [Recovered/Resolved]
  - Tachycardia [Recovered/Resolved]
  - Malaise [Recovered/Resolved]
  - Headache [Recovered/Resolved]

NARRATIVE: CASE EVENT DATE: 20141118
